FAERS Safety Report 20808213 (Version 1)
Quarter: 2022Q2

REPORT INFORMATION
  Report Type: Spontaneous
  Country: IN (occurrence: IN)
  Receive Date: 20220510
  Receipt Date: 20220510
  Transmission Date: 20220721
  Serious: Yes (Other)
  Sender: FDA-Public Use
  Company Number: IN-AMGEN-INDSP2022076143

PATIENT

DRUGS (3)
  1. ROMIPLOSTIM [Suspect]
     Active Substance: ROMIPLOSTIM
     Indication: Immune thrombocytopenia
     Dosage: UNK
     Route: 065
  2. ELTROMBOPAG [Concomitant]
     Active Substance: ELTROMBOPAG
  3. DAPSONE [Concomitant]
     Active Substance: DAPSONE

REACTIONS (10)
  - Nephritis [Unknown]
  - Haemorrhage [Unknown]
  - Pain [Unknown]
  - Oropharyngeal pain [Unknown]
  - Treatment failure [Unknown]
  - Headache [Unknown]
  - Hypertension [Unknown]
  - Loss of therapeutic response [Unknown]
  - Mucosal haemorrhage [Unknown]
  - Platelet count increased [Unknown]
